FAERS Safety Report 5859917-3 (Version None)
Quarter: 2008Q3

REPORT INFORMATION
  Report Type: 
  Country: None (occurrence: None)
  Receive Date: 20080818
  Receipt Date: 20080512
  Transmission Date: 20090109
  Serious: No
  Sender: FDA-Public Use
  Company Number: TPA2008A00691

PATIENT
  Age: 55 Year
  Sex: Male
  Weight: 102.0593 kg

DRUGS (14)
  1. ROZEREM [Suspect]
     Indication: INSOMNIA
     Dosage: 8 MG, QHS, PER ORAL
     Route: 048
     Dates: start: 20071101
  2. ELAVIL [Concomitant]
  3. ACIPHEX [Concomitant]
  4. PEPCID AC [Concomitant]
  5. LYRICA [Concomitant]
  6. ZANAFLEX [Concomitant]
  7. MOBIC [Concomitant]
  8. GLUCOSAMINE/ CHONDROITIN (GLUCOSAMINE, CHONDROITIN SULFATE) [Concomitant]
  9. VITAMIN B-6 COMPLEX (PYRIDOXINE HYDROCHLORIDE) [Concomitant]
  10. NIACIN [Concomitant]
  11. SAM-E (ADEMETIONINE) [Concomitant]
  12. OMEGA-3 FISH OIL (OMEGA-3 MARINE TRIGLYCERIDES) [Concomitant]
  13. SIMVASTATIN [Concomitant]
  14. VYTORIN [Concomitant]

REACTIONS (3)
  - ABNORMAL DREAMS [None]
  - FATIGUE [None]
  - MIDDLE INSOMNIA [None]
